FAERS Safety Report 9548767 (Version 1)
Quarter: 2013Q2

REPORT INFORMATION
  Report Type: Spontaneous
  Country: US (occurrence: None)
  Receive Date: 20130627
  Receipt Date: 20130627
  Transmission Date: 20140414
  Serious: Yes (Other)
  Sender: FDA-Public Use
  Company Number: 1000044188

PATIENT
  Age: 65 Year
  Sex: Female

DRUGS (1)
  1. LINZESS (LINACLOTIDE) (CAPSULES) [Suspect]
     Dosage: 145 MCG (145 MCG, 1 IN 1 D)

REACTIONS (1)
  - Anxiety [None]
